FAERS Safety Report 4452016-7 (Version None)
Quarter: 2004Q3

REPORT INFORMATION
  Report Type: 
  Country: None (occurrence: None)
  Receive Date: 20040915
  Receipt Date: 20040915
  Transmission Date: 20050211
  Serious: Yes (Death, Hospitalization)
  Sender: FDA-Public Use
  Company Number: None

PATIENT
  Age: 73 Year
  Sex: Female
  Weight: 141.2 kg

DRUGS (17)
  1. ZOCOR [Suspect]
     Indication: BLOOD CHOLESTEROL INCREASED
     Dosage: 80 MG PO QD
     Route: 048
     Dates: end: 20040630
  2. XANAX [Concomitant]
  3. MICRONASE [Concomitant]
  4. INSULIN [Concomitant]
  5. LEVAQUIN [Concomitant]
  6. PROTONIX [Concomitant]
  7. PERCOCET [Concomitant]
  8. DARVOCET [Concomitant]
  9. HALCION [Concomitant]
  10. ALLOPURINOL [Concomitant]
  11. KERLONE [Concomitant]
  12. BENEMID [Concomitant]
  13. LOTENSIN [Concomitant]
  14. POTASSIUM [Concomitant]
  15. NORVASC [Concomitant]
  16. ALLEGRA [Concomitant]
  17. INDOCIN [Concomitant]

REACTIONS (12)
  - CARDIAC ARREST [None]
  - CATHETER SITE HAEMORRHAGE [None]
  - DISSEMINATED INTRAVASCULAR COAGULATION [None]
  - HAEMATOMA [None]
  - HAEMATURIA [None]
  - HEPATIC FAILURE [None]
  - LIVER FUNCTION TEST ABNORMAL [None]
  - MULTI-ORGAN FAILURE [None]
  - OBSTRUCTIVE AIRWAYS DISORDER [None]
  - RENAL FAILURE [None]
  - RESPIRATORY FAILURE [None]
  - RHABDOMYOLYSIS [None]
